FAERS Safety Report 6556731-0 (Version None)
Quarter: 2010Q1

REPORT INFORMATION
  Report Type: 
  Country: None (occurrence: None)
  Receive Date: 20100128
  Receipt Date: 20100120
  Transmission Date: 20100710
  Serious: Yes (Hospitalization)
  Sender: FDA-Public Use
  Company Number: JP-ROCHE-681978

PATIENT
  Age: 78 Year
  Sex: Male

DRUGS (4)
  1. AVASTIN [Suspect]
     Indication: COLON CANCER
     Route: 041
     Dates: start: 20090616, end: 20091130
  2. IRINOTECAN HCL [Concomitant]
     Route: 041
  3. 5-FU [Concomitant]
     Route: 041
  4. LEVOFOLINATE [Concomitant]
     Route: 041

REACTIONS (1)
  - SUTURE RUPTURE [None]
